FAERS Safety Report 10077475 (Version 2)
Quarter: 2014Q2

REPORT INFORMATION
  Report Type: Spontaneous
  Country: DE (occurrence: None)
  Receive Date: 20140411
  Receipt Date: 20140415
  Transmission Date: 20141212
  Serious: Yes (Congenital Anomaly, Other)
  Sender: FDA-Public Use
  Company Number: AUR-APL-2014-04232

PATIENT
  Age: 1 Day
  Sex: Female
  Weight: 4.02 kg

DRUGS (4)
  1. QUETIAPINE [Suspect]
     Indication: PSYCHOTIC DISORDER
     Dosage: 300 MG, 1 IN 1 D
     Route: 064
     Dates: start: 20130113, end: 20131015
  2. QUILONUM (LITHIUM CARBONATE) [Suspect]
     Indication: PSYCHOTIC DISORDER
     Dosage: 900 MG (225 MG, 4 IN 1 D),TRANSPLACENTAL
     Route: 064
     Dates: start: 20130113, end: 20131015
  3. THIAMAZOLE [Suspect]
     Indication: HYPERTHYROIDISM
     Dosage: 20 MG, 1 IN 1 D
     Route: 064
     Dates: start: 20130113, end: 20130225
  4. FOLSAURE [Concomitant]

REACTIONS (5)
  - Hypoaldosteronism [None]
  - Hyponatraemia [None]
  - Kidney duplex [None]
  - Maternal drugs affecting foetus [None]
  - Large for dates baby [None]
